FAERS Safety Report 10006541 (Version 2)
Quarter: 2014Q1

REPORT INFORMATION
  Report Type: Report from Study
  Country: JP (occurrence: JP)
  Receive Date: 20140313
  Receipt Date: 20140326
  Transmission Date: 20141002
  Serious: Yes (Hospitalization, Other)
  Sender: FDA-Public Use
  Company Number: JP-ACTELION-A-CH2014-95708

PATIENT
  Age: 40 Year
  Sex: Female
  Weight: 50.5 kg

DRUGS (20)
  1. BOSENTAN [Suspect]
     Indication: SCLERODERMA ASSOCIATED DIGITAL ULCER
     Dosage: UNK
     Route: 048
     Dates: start: 20140217, end: 20140219
  2. BOSENTAN [Suspect]
     Dosage: UNK
     Route: 048
     Dates: start: 20140129, end: 20140205
  3. PLETAAL [Concomitant]
     Dosage: 200 MG, BID
     Dates: start: 20090803, end: 20140304
  4. BERASUS [Concomitant]
     Dosage: 360 ?G, BID
     Dates: start: 20090708, end: 20140305
  5. SELBEX [Concomitant]
     Dosage: 150 MG, TID
     Dates: start: 20131211
  6. PREMARIN [Concomitant]
     Dosage: 1.25 MG, BID
     Dates: start: 20120713
  7. LUTEDION [Concomitant]
     Dosage: UNK
     Dates: start: 20120713
  8. REVATIO [Concomitant]
     Dosage: 60 MG, TID
     Dates: start: 20100616
  9. NORVASC [Concomitant]
     Dosage: 7.5 MG, OD
     Dates: start: 20120914
  10. HIRUDOID [Concomitant]
     Dosage: UNK
     Dates: start: 20130927
  11. TAKEPRON [Concomitant]
     Dosage: 30 MG, OD
     Dates: start: 20060316
  12. GASMOTIN [Concomitant]
     Dosage: 15 MG, TID
     Dates: start: 20060315
  13. MAGNESIUM OXIDE [Concomitant]
     Dosage: 1 G, OD
     Dates: start: 20050817
  14. LAXOBERON [Concomitant]
     Dosage: UNK
     Dates: start: 20060311
  15. ALFAROL [Concomitant]
     Dosage: 1 ?G, OD
     Dates: start: 20050817
  16. PREDNISOLONE [Concomitant]
     Dosage: 2 MG, OD
     Dates: start: 20110713
  17. EURODIN [Concomitant]
     Dosage: 1 MG, QD
     Dates: start: 20100909
  18. SODIUM BICARBONATE [Concomitant]
     Dosage: 1.5 G, UNK
     Dates: start: 20130612
  19. PROSTANDIN [Concomitant]
     Dosage: UNK
     Dates: start: 20090415
  20. LOXONIN [Concomitant]
     Dosage: 180 MG, TID
     Dates: start: 20131211, end: 20140303

REACTIONS (13)
  - Oedema peripheral [Not Recovered/Not Resolved]
  - Chest pain [Recovered/Resolved]
  - Dyspnoea [Recovered/Resolved]
  - C-reactive protein increased [Recovered/Resolved]
  - Erythema [Not Recovered/Not Resolved]
  - Pleural effusion [Recovered/Resolved]
  - Systemic lupus erythematosus [Not Recovered/Not Resolved]
  - Lupus nephritis [Not Recovered/Not Resolved]
  - Nephrotic syndrome [Not Recovered/Not Resolved]
  - Biopsy kidney [Unknown]
  - Pneumonia [Recovered/Resolved]
  - Hypoproteinaemia [Not Recovered/Not Resolved]
  - Pyrexia [Recovered/Resolved]
